FAERS Safety Report 4864186-7 (Version None)
Quarter: 2005Q4

REPORT INFORMATION
  Report Type: 
  Country: None (occurrence: None)
  Receive Date: 20051219
  Receipt Date: 20051205
  Transmission Date: 20060501
  Serious: Yes (Hospitalization)
  Sender: FDA-Public Use
  Company Number: 2005168037

PATIENT
  Age: 58 Year
  Sex: Male

DRUGS (5)
  1. CEFPODOXIME PROXETIL [Suspect]
     Indication: ILL-DEFINED DISORDER
     Dosage: ORAL
     Route: 048
     Dates: start: 20051003, end: 20051005
  2. PREDNISONE [Suspect]
     Indication: ILL-DEFINED DISORDER
     Dosage: ORAL
     Route: 048
     Dates: start: 20051003, end: 20051005
  3. TIXOCORTOL PIVALATE [Suspect]
     Indication: ILL-DEFINED DISORDER
     Dates: start: 20051003, end: 20051005
  4. PSEUDOEPHEDRINE HCL [Suspect]
     Indication: ILL-DEFINED DISORDER
     Dosage: ORAL
     Route: 048
     Dates: start: 20051003, end: 20051005
  5. NIMESULIDE (NIMESULIDE) [Suspect]
     Indication: ILL-DEFINED DISORDER
     Dates: start: 20051007

REACTIONS (3)
  - LEUKOCYTOCLASTIC VASCULITIS [None]
  - NECROSIS [None]
  - OEDEMA PERIPHERAL [None]
